FAERS Safety Report 15259117 (Version 1)
Quarter: 2018Q3

REPORT INFORMATION
  Report Type: Spontaneous
  Country: US (occurrence: US)
  Receive Date: 20180718
  Receipt Date: 20180718
  Transmission Date: 20181010
  Serious: Yes (Disabling)
  Sender: FDA-Public Use
  Company Number: None

PATIENT
  Age: 31 Year
  Sex: Female
  Weight: 81 kg

DRUGS (8)
  1. NALTREXONE [Concomitant]
     Active Substance: NALTREXONE
  2. CAFFEINE. [Concomitant]
     Active Substance: CAFFEINE
  3. ADDERALL [Concomitant]
     Active Substance: AMPHETAMINE ASPARTATE\AMPHETAMINE SULFATE\DEXTROAMPHETAMINE SACCHARATE\DEXTROAMPHETAMINE SULFATE
  4. BUPROPION. [Concomitant]
     Active Substance: BUPROPION
  5. MEMANTINE. [Concomitant]
     Active Substance: MEMANTINE
  6. MULTI VITAMIN [Concomitant]
     Active Substance: VITAMINS
  7. ARIPIPRAZOLE 5MG [Suspect]
     Active Substance: ARIPIPRAZOLE
     Indication: BIPOLAR DISORDER
     Dosage: ?          QUANTITY:1 TABLET(S);?
     Route: 048
     Dates: start: 20180520, end: 20180612
  8. SERTRALINE [Concomitant]
     Active Substance: SERTRALINE HYDROCHLORIDE

REACTIONS (6)
  - Drug ineffective [None]
  - Impaired work ability [None]
  - Therapeutic response changed [None]
  - Product substitution issue [None]
  - Affect lability [None]
  - Treatment noncompliance [None]

NARRATIVE: CASE EVENT DATE: 20180612
